FAERS Safety Report 21773925 (Version 1)
Quarter: 2022Q4

REPORT INFORMATION
  Report Type: Spontaneous
  Country: CN (occurrence: CN)
  Receive Date: 20221223
  Receipt Date: 20221223
  Transmission Date: 20230112
  Serious: Yes (Other)
  Sender: FDA-Public Use
  Company Number: CN-PFIZER INC-PV202200126582

PATIENT
  Age: 70 Year
  Sex: Female
  Weight: 47.5 kg

DRUGS (1)
  1. VORICONAZOLE [Suspect]
     Active Substance: VORICONAZOLE
     Indication: Bronchopulmonary aspergillosis
     Dosage: 0.2 G, 2X/DAY
     Route: 041
     Dates: start: 20221202, end: 20221209

REACTIONS (4)
  - Hallucination, visual [Recovering/Resolving]
  - Altered state of consciousness [Recovering/Resolving]
  - Mental disorder [Recovering/Resolving]
  - Screaming [Recovering/Resolving]

NARRATIVE: CASE EVENT DATE: 20221209
